FAERS Safety Report 7959017-2 (Version None)
Quarter: 2011Q4

REPORT INFORMATION
  Report Type: 
  Country: None (occurrence: None)
  Receive Date: 20111206
  Receipt Date: 20111201
  Transmission Date: 20120403
  Serious: Yes (Hospitalization)
  Sender: FDA-Public Use
  Company Number: US-VERTEX PHARMACEUTICALS INC.-AE-2011-004307

PATIENT
  Sex: Male
  Weight: 103.97 kg

DRUGS (3)
  1. PEGASYS [Concomitant]
     Indication: HEPATITIS C
     Route: 058
     Dates: start: 20110901
  2. RIBAVIRIN [Concomitant]
     Indication: HEPATITIS C
     Dates: start: 20110901
  3. INCIVEK [Suspect]
     Indication: HEPATITIS C
     Route: 048
     Dates: start: 20110901

REACTIONS (9)
  - BLOOD POTASSIUM DECREASED [None]
  - ALOPECIA [None]
  - ANORECTAL DISCOMFORT [None]
  - FATIGUE [None]
  - ANAL PRURITUS [None]
  - DIZZINESS [None]
  - RASH [None]
  - BLOOD GLUCOSE INCREASED [None]
  - HAEMORRHOIDS [None]
